FAERS Safety Report 5712265-4 (Version None)
Quarter: 2008Q2

REPORT INFORMATION
  Report Type: 
  Country: None (occurrence: None)
  Receive Date: 20080418
  Receipt Date: 20080409
  Transmission Date: 20081010
  Serious: Yes (Other)
  Sender: FDA-Public Use
  Company Number: OPER20080073

PATIENT
  Age: 52 Year
  Sex: Female
  Weight: 86.1834 kg

DRUGS (3)
  1. OPANA [Suspect]
     Indication: PAIN
     Dosage: 5 MG, 1 TAB BID PRN, PER ORAL
     Route: 048
     Dates: start: 20080308
  2. OPANA ER [Suspect]
     Indication: PAIN
     Dosage: 10 MG, 4 TABS BID, PER ORAL
     Route: 048
     Dates: start: 20080308
  3. PROZAC [Concomitant]

REACTIONS (2)
  - DRUG INEFFECTIVE [None]
  - INCORRECT DOSE ADMINISTERED [None]
